FAERS Safety Report 12665720 (Version 1)
Quarter: 2016Q3

REPORT INFORMATION
  Report Type: Spontaneous
  Country: FR (occurrence: FR)
  Receive Date: 20160818
  Receipt Date: 20160818
  Transmission Date: 20161109
  Serious: Yes (Other)
  Sender: FDA-Public Use
  Company Number: FR-ABBVIE-16P-056-1579860-00

PATIENT
  Age: 13 Year
  Sex: Male

DRUGS (2)
  1. ZECLAR [Suspect]
     Active Substance: CLARITHROMYCIN
     Indication: MYCOPLASMA INFECTION
     Route: 065
  2. ZECLAR [Suspect]
     Active Substance: CLARITHROMYCIN
     Indication: LUNG DISORDER
     Dosage: ONE DOSE ACCORDING TO PATIENT WEIGHT IN THE MORNING AND EVENING
     Route: 065
     Dates: start: 201602, end: 201602

REACTIONS (4)
  - Oxygen supplementation [Unknown]
  - Malaise [Recovered/Resolved]
  - Hypotonia [Unknown]
  - Pallor [Unknown]

NARRATIVE: CASE EVENT DATE: 201602
